FAERS Safety Report 8151041-2 (Version None)
Quarter: 2012Q1

REPORT INFORMATION
  Report Type: 
  Country: None (occurrence: None)
  Receive Date: 20120220
  Receipt Date: 20120213
  Transmission Date: 20120608
  Serious: Yes (Death)
  Sender: FDA-Public Use
  Company Number: JP-MERCK-1202USA02513

PATIENT
  Age: 40 Year
  Sex: Male

DRUGS (1)
  1. COZAAR [Suspect]
     Indication: BLOOD PRESSURE DECREASED
     Route: 048
     Dates: start: 20111201, end: 20120101

REACTIONS (1)
  - INTERSTITIAL LUNG DISEASE [None]
